FAERS Safety Report 8201179-6 (Version None)
Quarter: 2012Q1

REPORT INFORMATION
  Report Type: 
  Country: None (occurrence: None)
  Receive Date: 20120312
  Receipt Date: 20120302
  Transmission Date: 20120608
  Serious: Yes (Hospitalization)
  Sender: FDA-Public Use
  Company Number: PHHY2012JP014526

PATIENT
  Age: 85 Year
  Sex: Male

DRUGS (3)
  1. EXELON [Suspect]
     Indication: DEMENTIA ALZHEIMER'S TYPE
     Dosage: 4.5 MG, DAILY
     Route: 062
     Dates: start: 20120123, end: 20120206
  2. MEMANTINE HYDROCHLORIDE [Concomitant]
     Dosage: 15 MG, UNK
     Route: 048
     Dates: start: 20120123
  3. LIPITOR [Concomitant]
     Dosage: 10 MG, UNK
     Route: 048
     Dates: start: 20120123

REACTIONS (1)
  - ELECTROCARDIOGRAM QT PROLONGED [None]
